FAERS Safety Report 4429225-6 (Version None)
Quarter: 2004Q3

REPORT INFORMATION
  Report Type: 
  Country: None (occurrence: None)
  Receive Date: 20040809
  Receipt Date: 20040809
  Transmission Date: 20050211
  Serious: Yes (Hospitalization)
  Sender: FDA-Public Use
  Company Number: None

PATIENT
  Age: 75 Year
  Sex: Male
  Weight: 67.1324 kg

DRUGS (15)
  1. PHENYTOIN [Suspect]
     Indication: CEREBROVASCULAR ACCIDENT
     Dosage: 100 MG TID INTRAVENOUS
     Route: 042
     Dates: start: 20040715, end: 20040723
  2. PHENYTOIN [Suspect]
     Indication: CONVULSION
     Dosage: 100 MG TID INTRAVENOUS
     Route: 042
     Dates: start: 20040715, end: 20040723
  3. LISINOPRIL [Concomitant]
  4. LANSOPRAZOLE [Concomitant]
  5. LOVASTATIN [Concomitant]
  6. METOPROLOL [Concomitant]
  7. NEPHROVITE [Concomitant]
  8. SENNA [Concomitant]
  9. BISACODYL [Concomitant]
  10. NOVOLIN R [Concomitant]
  11. INSULIN [Concomitant]
  12. LORAZEPAM [Concomitant]
  13. MUPIROCIN CREAM [Concomitant]
  14. NITROPASTE [Concomitant]
  15. SORBITOL [Concomitant]

REACTIONS (2)
  - BLOOD ALBUMIN DECREASED [None]
  - THROMBOCYTOPENIA [None]
